FAERS Safety Report 12335012 (Version 3)
Quarter: 2016Q2

REPORT INFORMATION
  Report Type: Spontaneous
  Country: US (occurrence: US)
  Receive Date: 20160504
  Receipt Date: 20160526
  Transmission Date: 20160815
  Serious: Yes (Hospitalization)
  Sender: FDA-Public Use
  Company Number: US-ACTELION-A-NJ2016-135519

PATIENT
  Age: 50 Year
  Sex: Female

DRUGS (5)
  1. PREDNISONE. [Concomitant]
     Active Substance: PREDNISONE
  2. LASIX [Concomitant]
     Active Substance: FUROSEMIDE
  3. LETAIRIS [Concomitant]
     Active Substance: AMBRISENTAN
  4. VELETRI [Suspect]
     Active Substance: EPOPROSTENOL
     Indication: PULMONARY ARTERIAL HYPERTENSION
     Dosage: 34 NG/KG, PER MIN
     Route: 042
     Dates: start: 20111202, end: 20160502
  5. COUMADIN [Concomitant]
     Active Substance: WARFARIN SODIUM

REACTIONS (19)
  - Culture positive [Unknown]
  - Sepsis [Recovered/Resolved]
  - Diarrhoea [Recovered/Resolved]
  - Asthenia [Recovered/Resolved]
  - Acute kidney injury [Unknown]
  - Acute respiratory distress syndrome [Recovered/Resolved]
  - Staphylococcus test positive [Recovered/Resolved]
  - Pyrexia [Recovered/Resolved]
  - Device dislocation [Recovered/Resolved]
  - Catheter site infection [Unknown]
  - Multiple organ dysfunction syndrome [Recovered/Resolved]
  - White blood cell count increased [Recovered/Resolved]
  - Catheter site inflammation [Unknown]
  - Central venous catheter removal [Unknown]
  - Hepatic failure [Unknown]
  - Septic shock [Recovered/Resolved]
  - Respiratory failure [Unknown]
  - Device related infection [Recovered/Resolved]
  - Muscular weakness [Unknown]

NARRATIVE: CASE EVENT DATE: 20140404
